FAERS Safety Report 7924792-X (Version None)
Quarter: 2011Q4

REPORT INFORMATION
  Report Type: 
  Country: None (occurrence: None)
  Receive Date: 20111118
  Receipt Date: 20110328
  Transmission Date: 20120403
  Serious: No
  Sender: FDA-Public Use
  Company Number: US-AMGEN-USASP2011016510

PATIENT
  Sex: Male

DRUGS (1)
  1. ENBREL [Suspect]
     Indication: PRODUCT USED FOR UNKNOWN INDICATION
     Dosage: 50 MG, QWK
     Dates: start: 20110326

REACTIONS (5)
  - NASAL DISCOMFORT [None]
  - PYREXIA [None]
  - SINUS DISORDER [None]
  - COUGH [None]
  - OROPHARYNGEAL PAIN [None]
